FAERS Safety Report 4894580-X (Version None)
Quarter: 2006Q1

REPORT INFORMATION
  Report Type: 
  Country: None (occurrence: None)
  Receive Date: 20060127
  Receipt Date: 20060113
  Transmission Date: 20060701
  Serious: Yes (Hospitalization)
  Sender: FDA-Public Use
  Company Number: US-MERCK-0601USA01803

PATIENT
  Age: 49 Year
  Sex: Female

DRUGS (4)
  1. [THERAPY UNSPECIFIED] [Suspect]
     Indication: MIGRAINE
     Route: 065
  2. MAXALT [Suspect]
     Indication: MIGRAINE
     Route: 048
  3. TOPAMAX [Suspect]
     Indication: MIGRAINE
     Route: 065
  4. ZOMIG [Suspect]
     Indication: MIGRAINE
     Route: 065

REACTIONS (1)
  - MIGRAINE [None]
